FAERS Safety Report 9324375 (Version 2)
Quarter: 2013Q3

REPORT INFORMATION
  Report Type: Spontaneous
  Country: GB (occurrence: GB)
  Receive Date: 20130603
  Receipt Date: 20130710
  Transmission Date: 20140515
  Serious: Yes (Other)
  Sender: FDA-Public Use
  Company Number: GB-ELI_LILLY_AND_COMPANY-GB201305006957

PATIENT
  Age: 37 Year
  Sex: Female

DRUGS (3)
  1. CYMBALTA [Suspect]
     Indication: FIBROMYALGIA
     Dosage: 60 MG, QD
     Route: 048
     Dates: start: 201205, end: 201303
  2. CYMBALTA [Suspect]
     Dosage: 30 MG, QD
     Route: 048
     Dates: start: 201303, end: 20130424
  3. CYMBALTA [Suspect]
     Dosage: 30 MG, QOD
     Route: 048
     Dates: start: 20130424, end: 20130508

REACTIONS (8)
  - Indifference [Recovered/Resolved]
  - Tearfulness [Not Recovered/Not Resolved]
  - Feeling drunk [Recovered/Resolved]
  - Paraesthesia [Recovered/Resolved]
  - Fatigue [Unknown]
  - Dizziness [Not Recovered/Not Resolved]
  - Malaise [Unknown]
  - Drug withdrawal syndrome [Not Recovered/Not Resolved]
